FAERS Safety Report 8833645 (Version 1)
Quarter: 2012Q4

REPORT INFORMATION
  Report Type: 
  Country: DE (occurrence: DE)
  Receive Date: 20121010
  Receipt Date: 20121010
  Transmission Date: 20130627
  Serious: Yes (Hospitalization)
  Sender: FDA-Public Use
  Company Number: DE-MYLANLABS-2012S1020203

PATIENT
  Age: 53 Year
  Sex: Female

DRUGS (1)
  1. MIRTAZAPINE [Suspect]
     Indication: PRODUCT USED FOR UNKNOWN INDICATION
     Dosage: 40-45 TABLETS
     Route: 048

REACTIONS (5)
  - Suicide attempt [Unknown]
  - Overdose [Unknown]
  - Tachycardia [Unknown]
  - Sopor [Unknown]
  - Hypertension [Unknown]
